FAERS Safety Report 9852583 (Version 1)
Quarter: 2014Q1

REPORT INFORMATION
  Report Type: Spontaneous
  Country: SG (occurrence: SG)
  Receive Date: 20140129
  Receipt Date: 20140129
  Transmission Date: 20141002
  Serious: Yes (Hospitalization, Other)
  Sender: FDA-Public Use
  Company Number: SG-ROXANE LABORATORIES, INC.-2014-RO-00106RO

PATIENT
  Sex: Male

DRUGS (9)
  1. METHOTREXATE [Suspect]
     Indication: PSORIASIS
     Dates: start: 201108, end: 201112
  2. METHOTREXATE [Suspect]
     Dates: start: 201201
  3. QUETIAPINE FUMARATE [Suspect]
     Indication: BIPOLAR DISORDER
     Dosage: 400 MG
  4. QUETIAPINE FUMARATE [Suspect]
     Dosage: 600 MG
     Dates: start: 201112
  5. LITHIUM CARBONATE [Suspect]
     Indication: BIPOLAR DISORDER
     Dates: end: 2003
  6. LITHIUM CARBONATE [Suspect]
     Dates: end: 2010
  7. CARBAMAZEPINE [Suspect]
     Indication: BIPOLAR DISORDER
     Dosage: 800 MG
  8. FOLIC ACID [Suspect]
     Dates: start: 201108
  9. THYROXINE [Concomitant]
     Indication: HYPOTHYROIDISM
     Dates: start: 2010

REACTIONS (3)
  - Mania [Recovered/Resolved]
  - Psoriasis [Unknown]
  - Hypothyroidism [Unknown]
